FAERS Safety Report 12586914 (Version 4)
Quarter: 2016Q3

REPORT INFORMATION
  Report Type: Report from Study
  Country: CA (occurrence: CA)
  Receive Date: 20160725
  Receipt Date: 20160823
  Transmission Date: 20161109
  Serious: Yes (Hospitalization)
  Sender: FDA-Public Use
  Company Number: CA-JNJFOC-20160615314

PATIENT
  Age: 37 Year
  Sex: Female
  Weight: 75.6 kg

DRUGS (16)
  1. SOLU-CORTEF [Concomitant]
     Active Substance: HYDROCORTISONE SODIUM SUCCINATE
     Indication: PREMEDICATION
     Route: 065
  2. ZOPICLONE [Concomitant]
     Active Substance: ZOPICLONE
     Route: 065
  3. PANTOLOC [Concomitant]
     Active Substance: PANTOPRAZOLE SODIUM
     Route: 065
  4. TYLENOL [Concomitant]
     Active Substance: ACETAMINOPHEN
     Indication: PREMEDICATION
     Route: 065
  5. VITAMIN D [Concomitant]
     Active Substance: CHOLECALCIFEROL
     Route: 065
  6. REMICADE [Suspect]
     Active Substance: INFLIXIMAB
     Indication: CROHN^S DISEASE
     Dosage: 5MG/KG
     Route: 042
     Dates: start: 201601
  7. GRAVOL [Concomitant]
     Active Substance: DIMENHYDRINATE
     Indication: PREMEDICATION
     Route: 065
  8. MELATONIN [Concomitant]
     Active Substance: MELATONIN
     Route: 065
  9. REMICADE [Suspect]
     Active Substance: INFLIXIMAB
     Indication: CROHN^S DISEASE
     Route: 042
     Dates: start: 20160715
  10. SALBUTAMOL [Concomitant]
     Active Substance: ALBUTEROL
     Route: 065
  11. BENADRYL [Concomitant]
     Active Substance: DIPHENHYDRAMINE HYDROCHLORIDE
     Indication: PREMEDICATION
     Route: 065
  12. PENTASA [Concomitant]
     Active Substance: MESALAMINE
     Route: 065
  13. DILAUDID [Concomitant]
     Active Substance: HYDROMORPHONE HYDROCHLORIDE
     Route: 065
  14. HYDROMORPHONE [Concomitant]
     Active Substance: HYDROMORPHONE
     Route: 065
  15. REMICADE [Suspect]
     Active Substance: INFLIXIMAB
     Indication: CROHN^S DISEASE
     Route: 042
     Dates: start: 20160407
  16. PREDNISONE. [Concomitant]
     Active Substance: PREDNISONE
     Route: 065

REACTIONS (18)
  - Sinusitis [Unknown]
  - General physical health deterioration [Unknown]
  - Abdominal pain [Unknown]
  - Pruritus [Unknown]
  - Product use issue [Unknown]
  - Bacterial infection [Recovered/Resolved]
  - Adverse event [Unknown]
  - Muscle spasms [Recovered/Resolved]
  - Rhinitis [Unknown]
  - Rash [Unknown]
  - Throat irritation [Recovered/Resolved]
  - Migraine [Unknown]
  - Formication [Unknown]
  - Off label use [Unknown]
  - Arthralgia [Recovered/Resolved]
  - Infusion related reaction [Recovered/Resolved]
  - Nausea [Unknown]
  - Myalgia [Recovered/Resolved]

NARRATIVE: CASE EVENT DATE: 2016
